FAERS Safety Report 23367352 (Version 1)
Quarter: 2024Q1

REPORT INFORMATION
  Report Type: Spontaneous
  Country: US (occurrence: US)
  Receive Date: 20240104
  Receipt Date: 20240104
  Transmission Date: 20240410
  Serious: No
  Sender: FDA-Public Use
  Company Number: US-MARINUS PHARMACEUTICALS, INC.-MAR2023000132

PATIENT

DRUGS (2)
  1. ZTALMY [Suspect]
     Active Substance: GANAXOLONE
     Indication: CDKL5 deficiency disorder
     Dosage: 3 MILLILITER, TID
     Route: 048
     Dates: start: 20230630
  2. ZTALMY [Suspect]
     Active Substance: GANAXOLONE
     Dosage: 6 MILLILITER, TID
     Route: 048

REACTIONS (1)
  - Drug intolerance [Unknown]
